FAERS Safety Report 5874039-3 (Version None)
Quarter: 2008Q3

REPORT INFORMATION
  Report Type: 
  Country: None (occurrence: None)
  Receive Date: 20080829
  Receipt Date: 20080825
  Transmission Date: 20090109
  Serious: Yes (Life-Threatening)
  Sender: FDA-Public Use
  Company Number: 2008-182592-NL

PATIENT
  Age: 92 Year
  Sex: Female

DRUGS (9)
  1. MIRTAZAPINE [Suspect]
     Indication: DEPRESSION
     Dosage: 30 MG QD ORAL
     Route: 048
  2. DESMOPRESSIN ACETATE [Suspect]
     Indication: URINARY INCONTINENCE
     Dosage: 10 UG NASAL
     Route: 045
     Dates: start: 20080516, end: 20080525
  3. ESOMEPRAZOLE MAGNESIUM [Suspect]
     Dosage: 20 MG QD ORAL
     Route: 048
  4. CLONAZEPAM [Suspect]
     Indication: ANXIETY
     Dosage: 10 MG QD ORAL
     Route: 048
  5. RISPERIDONE [Suspect]
     Indication: ANXIETY
     Dosage: 1 MG QD ORAL
     Route: 048
  6. TROSPIUM CHLORIDE [Concomitant]
  7. ACETYLSALICYLATE LYSINE [Concomitant]
  8. MACROGOL [Concomitant]
  9. ACETAMINOPHEN W/ CODEINE [Concomitant]

REACTIONS (2)
  - FALL [None]
  - HYPONATRAEMIA [None]
